FAERS Safety Report 7992366-0 (Version None)
Quarter: 2011Q4

REPORT INFORMATION
  Report Type: 
  Country: None (occurrence: None)
  Receive Date: 20111219
  Receipt Date: 20110314
  Transmission Date: 20120403
  Serious: No
  Sender: FDA-Public Use
  Company Number: US-ASTRAZENECA-2011SE14302

PATIENT
  Age: 73 Year
  Sex: Male
  Weight: 99.8 kg

DRUGS (7)
  1. ENALAPRIL MALEATE [Concomitant]
     Indication: HYPERTENSION
  2. FISH OIL [Concomitant]
     Indication: HYPERCHOLESTEROLAEMIA
  3. METOPROLOL [Concomitant]
     Indication: HYPERTENSION
  4. PLAVIX [Concomitant]
     Indication: HYPERTENSION
  5. ZANTAC [Concomitant]
     Indication: GASTROOESOPHAGEAL REFLUX DISEASE
  6. CRESTOR [Suspect]
     Route: 048
  7. ASPIRIN [Concomitant]

REACTIONS (1)
  - PAIN [None]
